FAERS Safety Report 17755689 (Version 2)
Quarter: 2020Q2

REPORT INFORMATION
  Report Type: Spontaneous
  Country: US (occurrence: US)
  Receive Date: 20200507
  Receipt Date: 20200616
  Transmission Date: 20200714
  Serious: No
  Sender: FDA-Public Use
  Company Number: US-SA-2020SA113530

PATIENT

DRUGS (1)
  1. DUPIXENT [Suspect]
     Active Substance: DUPILUMAB
     Indication: DERMATITIS ATOPIC
     Dosage: 300 MG, OTHER
     Route: 058
     Dates: start: 202003

REACTIONS (3)
  - Oral herpes [Unknown]
  - Product dose omission [Unknown]
  - Contusion [Unknown]

NARRATIVE: CASE EVENT DATE: 2020
